FAERS Safety Report 7053795-5 (Version None)
Quarter: 2010Q4

REPORT INFORMATION
  Report Type: 
  Country: None (occurrence: None)
  Receive Date: 20101020
  Receipt Date: 20101012
  Transmission Date: 20110411
  Serious: Yes (Hospitalization)
  Sender: FDA-Public Use
  Company Number: B0680198A

PATIENT
  Sex: Female

DRUGS (9)
  1. LANOXIN [Suspect]
     Indication: ATRIAL FIBRILLATION
     Route: 048
     Dates: start: 20000101, end: 20100802
  2. ALDARA [Suspect]
     Route: 061
     Dates: start: 20100705, end: 20100721
  3. COZAAR [Suspect]
     Indication: PRODUCT USED FOR UNKNOWN INDICATION
     Route: 065
     Dates: start: 20000101
  4. LERCANIDIPINE [Concomitant]
     Dosage: 10MG PER DAY
     Route: 065
  5. SIMVASTATIN [Concomitant]
     Route: 065
  6. METOPROLOL [Concomitant]
     Route: 065
  7. ACENOCOUMAROL [Concomitant]
     Route: 065
  8. PANTOPRAZOLE SODIUM [Concomitant]
     Route: 065
  9. FEXOFENADINE HCL [Concomitant]
     Route: 065

REACTIONS (1)
  - RENAL FAILURE ACUTE [None]
